FAERS Safety Report 19974687 (Version 1)
Quarter: 2021Q4

REPORT INFORMATION
  Report Type: Spontaneous
  Country: CA (occurrence: CA)
  Receive Date: 20211020
  Receipt Date: 20211020
  Transmission Date: 20220303
  Serious: Yes (Hospitalization)
  Sender: FDA-Public Use
  Company Number: CA-NOVARTISPH-NVSC2021CA235040

PATIENT
  Age: 50 Year
  Sex: Female

DRUGS (3)
  1. MAYZENT [Suspect]
     Active Substance: SIPONIMOD
     Indication: Product used for unknown indication
     Dosage: 1 MG, QD
     Route: 048
  2. IRON [Concomitant]
     Active Substance: IRON
     Indication: Product used for unknown indication
     Dosage: UNK
     Route: 065
  3. XARELTO [Concomitant]
     Active Substance: RIVAROXABAN
     Indication: Product used for unknown indication
     Dosage: UNK
     Route: 065

REACTIONS (13)
  - Amnesia [Unknown]
  - Anaemia [Unknown]
  - Balance disorder [Unknown]
  - COVID-19 [Unknown]
  - Confusional state [Unknown]
  - Deep vein thrombosis [Unknown]
  - Fall [Unknown]
  - Head injury [Unknown]
  - Influenza like illness [Unknown]
  - Loss of consciousness [Unknown]
  - Pulmonary embolism [Unknown]
  - SARS-CoV-2 test positive [Unknown]
  - Urogenital haemorrhage [Unknown]
